FAERS Safety Report 5095354-X (Version None)
Quarter: 2006Q3

REPORT INFORMATION
  Report Type: 
  Country: None (occurrence: None)
  Receive Date: 20060901
  Receipt Date: 20060824
  Transmission Date: 20061208
  Serious: Yes (Death)
  Sender: FDA-Public Use
  Company Number: FR-SANOFI-SYNTHELABO-A02200602158

PATIENT
  Age: 91 Year
  Sex: Male
  Weight: 60 kg

DRUGS (3)
  1. OMEPRAZOLE [Concomitant]
     Indication: DRUG USE FOR UNKNOWN INDICATION
     Route: 048
     Dates: start: 20030701, end: 20060605
  2. COVERSYL [Concomitant]
     Indication: DRUG USE FOR UNKNOWN INDICATION
     Route: 048
     Dates: start: 20030701, end: 20060605
  3. PLAVIX [Suspect]
     Indication: DRUG USE FOR UNKNOWN INDICATION
     Route: 048
     Dates: start: 20030701, end: 20060605

REACTIONS (3)
  - CEREBRAL HAEMATOMA [None]
  - COMA [None]
  - PNEUMONIA ASPIRATION [None]
